FAERS Safety Report 5595456-5 (Version None)
Quarter: 2008Q1

REPORT INFORMATION
  Report Type: 
  Country: None (occurrence: None)
  Receive Date: 20080118
  Receipt Date: 20080109
  Transmission Date: 20080703
  Serious: Yes (Death)
  Sender: FDA-Public Use
  Company Number: FR-TYCO HEALTHCARE/MALLINCKRODT-T200701601

PATIENT

DRUGS (1)
  1. LIQUID BAROSPERSE [Suspect]
     Indication: BARIUM SWALLOW
     Dosage: UNK, SINGLE
     Route: 048
     Dates: start: 20040101, end: 20040101

REACTIONS (3)
  - ACUTE RESPIRATORY DISTRESS SYNDROME [None]
  - DIFFUSE ALVEOLAR DAMAGE [None]
  - FOREIGN BODY ASPIRATION [None]
